FAERS Safety Report 12299129 (Version 1)
Quarter: 2016Q2

REPORT INFORMATION
  Report Type: Spontaneous
  Country: CH (occurrence: CH)
  Receive Date: 20160425
  Receipt Date: 20160425
  Transmission Date: 20160815
  Serious: Yes (Other)
  Sender: FDA-Public Use
  Company Number: CH-ROCHE-1746198

PATIENT
  Sex: Male

DRUGS (10)
  1. VALCYTE [Suspect]
     Active Substance: VALGANCICLOVIR HYDROCHLORIDE
     Route: 065
  2. TOREM [Concomitant]
     Active Substance: TORSEMIDE
     Route: 065
  3. NERVIFENE [Concomitant]
     Active Substance: CHLORAL HYDRATE
     Route: 065
  4. ASPIRIN CARDIO [Concomitant]
     Active Substance: ASPIRIN
     Route: 065
  5. DIOVAN [Concomitant]
     Active Substance: VALSARTAN
     Route: 065
  6. INSPRA [Concomitant]
     Active Substance: EPLERENONE
     Route: 065
  7. MARCOUMAR [Concomitant]
     Active Substance: PHENPROCOUMON
     Route: 065
  8. ESOMEP (SWITZERLAND) [Concomitant]
     Active Substance: ESOMEPRAZOLE
     Route: 065
  9. VALCYTE [Suspect]
     Active Substance: VALGANCICLOVIR HYDROCHLORIDE
     Indication: PRODUCT USED FOR UNKNOWN INDICATION
     Route: 065
     Dates: start: 20151016
  10. CORDARONE [Concomitant]
     Active Substance: AMIODARONE HYDROCHLORIDE
     Route: 065

REACTIONS (2)
  - Leukopenia [Unknown]
  - Lymphopenia [Unknown]
